FAERS Safety Report 25876084 (Version 1)
Quarter: 2025Q4

REPORT INFORMATION
  Report Type: Spontaneous
  Country: US (occurrence: US)
  Receive Date: 20251003
  Receipt Date: 20251003
  Transmission Date: 20260118
  Serious: No
  Sender: ALEXION PHARMACEUTICALS
  Company Number: US-AstraZeneca-CH-00962076AP

PATIENT
  Sex: Male

DRUGS (1)
  1. BREZTRI [Suspect]
     Active Substance: BUDESONIDE\FORMOTEROL\GLYCOPYRROLATE
     Dosage: UNK, BID
     Route: 065

REACTIONS (8)
  - Paraesthesia oral [Unknown]
  - Overdose [Unknown]
  - Incorrect dose administered by device [Unknown]
  - Device malfunction [Unknown]
  - Product use issue [Unknown]
  - Wrong technique in product usage process [Unknown]
  - Drug ineffective [Unknown]
  - Wrong technique in device usage process [Unknown]
